FAERS Safety Report 7958385-5 (Version None)
Quarter: 2011Q4

REPORT INFORMATION
  Report Type: 
  Country: None (occurrence: None)
  Receive Date: 20111205
  Receipt Date: 20111128
  Transmission Date: 20120403
  Serious: Yes (Hospitalization, Other)
  Sender: FDA-Public Use
  Company Number: US-MERCK-1111USA03878

PATIENT
  Age: 76 Year
  Sex: Male

DRUGS (6)
  1. METOPROLOL [Concomitant]
     Route: 065
  2. SIMVASTATIN [Concomitant]
     Route: 048
  3. LISINOPRIL [Concomitant]
     Route: 048
  4. JANUMET [Suspect]
     Route: 048
     Dates: start: 20110930
  5. JANUMET [Suspect]
     Indication: DIABETES MELLITUS
     Route: 048
     Dates: start: 20110722, end: 20110101
  6. PLAVIX [Concomitant]
     Route: 065

REACTIONS (4)
  - INAPPROPRIATE SCHEDULE OF DRUG ADMINISTRATION [None]
  - BLINDNESS [None]
  - DIABETIC RETINOPATHY [None]
  - CEREBROVASCULAR ACCIDENT [None]
